FAERS Safety Report 4315247-2 (Version None)
Quarter: 2004Q1

REPORT INFORMATION
  Report Type: 
  Country: None (occurrence: None)
  Receive Date: 20040311
  Receipt Date: 20040219
  Transmission Date: 20041129
  Serious: Yes (Hospitalization)
  Sender: FDA-Public Use
  Company Number: AU-BRISTOL-MYERS SQUIBB COMPANY-12511424

PATIENT
  Age: 39 Year
  Sex: Female

DRUGS (3)
  1. IFOSFAMIDE [Suspect]
     Indication: LYMPHOMA
     Route: 042
     Dates: start: 20040114, end: 20040114
  2. GEMZAR [Suspect]
     Indication: LYMPHOMA
     Route: 042
     Dates: start: 20040114, end: 20040114
  3. VINORELBINE TARTRATE [Suspect]
     Indication: LYMPHOMA
     Route: 042
     Dates: start: 20040114, end: 20040114

REACTIONS (3)
  - LYMPHADENOPATHY [None]
  - NECK MASS [None]
  - RECALL PHENOMENON [None]
